FAERS Safety Report 10099724 (Version 3)
Quarter: 2015Q3

REPORT INFORMATION
  Report Type: Spontaneous
  Country: US (occurrence: US)
  Receive Date: 20140423
  Receipt Date: 20150814
  Transmission Date: 20151125
  Serious: No
  Sender: FDA-Public Use
  Company Number: US-GILEAD-2013-0071194

PATIENT
  Age: 58 Year
  Sex: Female
  Weight: 82.54 kg

DRUGS (14)
  1. LETAIRIS [Suspect]
     Active Substance: AMBRISENTAN
     Indication: PRODUCT USED FOR UNKNOWN INDICATION
     Dosage: 5 MG, QD
     Dates: start: 20091006
  2. OMEGA 3                            /01334101/ [Concomitant]
     Active Substance: OMEGA-3 FATTY ACIDS
  3. METHOTREXATE [Concomitant]
     Active Substance: METHOTREXATE
  4. NORVASC [Concomitant]
     Active Substance: AMLODIPINE BESYLATE
  5. ZOCOR [Concomitant]
     Active Substance: SIMVASTATIN
  6. ASPIRIN. [Concomitant]
     Active Substance: ASPIRIN
  7. ZYRTEC [Concomitant]
     Active Substance: CETIRIZINE HYDROCHLORIDE
  8. ACCURETIC [Concomitant]
     Active Substance: HYDROCHLOROTHIAZIDE\QUINAPRIL HYDROCHLORIDE
  9. PRILOSEC [Concomitant]
     Active Substance: OMEPRAZOLE MAGNESIUM
  10. DELTASONE                          /00016001/ [Concomitant]
  11. VENTOLIN HFA [Concomitant]
     Active Substance: ALBUTEROL SULFATE
  12. FOLVITE                            /00024201/ [Concomitant]
  13. NORCO [Concomitant]
     Active Substance: ACETAMINOPHEN\HYDROCODONE BITARTRATE
  14. MINOCIN [Concomitant]
     Active Substance: MINOCYCLINE HYDROCHLORIDE

REACTIONS (5)
  - Oral candidiasis [Unknown]
  - Vitamin D deficiency [Unknown]
  - Nasal dryness [Unknown]
  - Dry mouth [Unknown]
  - Pharyngitis streptococcal [Recovered/Resolved]

NARRATIVE: CASE EVENT DATE: 20130301
